FAERS Safety Report 4879029-5 (Version None)
Quarter: 2006Q1

REPORT INFORMATION
  Report Type: 
  Country: None (occurrence: None)
  Receive Date: 20060110
  Receipt Date: 20060110
  Transmission Date: 20060701
  Serious: Yes (Hospitalization, Other)
  Sender: FDA-Public Use
  Company Number: None

PATIENT
  Sex: Male
  Weight: 81.3 kg

DRUGS (4)
  1. PENTOSTATIN [Suspect]
     Indication: CHRONIC LYMPHOCYTIC LEUKAEMIA
     Dosage: SEE IMAGE
     Dates: start: 20051220, end: 20051220
  2. PENTOSTATIN [Suspect]
     Indication: CHRONIC LYMPHOCYTIC LEUKAEMIA
     Dosage: SEE IMAGE
     Dates: start: 20051227
  3. RITUXAN [Suspect]
     Dosage: SEE IMAGE
     Dates: start: 20051220, end: 20051224
  4. CYTOXAN [Suspect]
     Dosage: SEE IMAGE

REACTIONS (8)
  - ASPERGILLOSIS [None]
  - BLOOD BLISTER [None]
  - COMPUTERISED TOMOGRAM ABNORMAL [None]
  - LUNG DISORDER [None]
  - PETECHIAE [None]
  - PRODUCTIVE COUGH [None]
  - PYREXIA [None]
  - SPUTUM DISCOLOURED [None]
